FAERS Safety Report 25207309 (Version 1)
Quarter: 2025Q2

REPORT INFORMATION
  Report Type: Spontaneous
  Country: US (occurrence: US)
  Receive Date: 20250417
  Receipt Date: 20250417
  Transmission Date: 20250717
  Serious: Yes (Other)
  Sender: HIKMA
  Company Number: US-HIKMA PHARMACEUTICALS USA INC.-US-H14001-25-03238

PATIENT
  Sex: Female

DRUGS (1)
  1. AMIKACIN [Suspect]
     Active Substance: AMIKACIN
     Indication: Product used for unknown indication
     Route: 065

REACTIONS (7)
  - Bronchiectasis [Unknown]
  - Mycobacterium avium complex infection [Unknown]
  - Dyspnoea [Unknown]
  - Hypertension [Unknown]
  - Depression [Unknown]
  - Rash [Unknown]
  - Drug intolerance [Unknown]
